FAERS Safety Report 4465490-7 (Version None)
Quarter: 2004Q4

REPORT INFORMATION
  Report Type: 
  Country: None (occurrence: None)
  Receive Date: 20041001
  Receipt Date: 20040927
  Transmission Date: 20050328
  Serious: Yes (Other)
  Sender: FDA-Public Use
  Company Number: 002796

PATIENT
  Age: 64 Year
  Sex: Female

DRUGS (5)
  1. MEDROXYPROGESTERONE ACETATE [Suspect]
     Dates: start: 19850101, end: 19910101
  2. PROGESTIN INJ [Suspect]
     Dates: start: 19850101, end: 19910101
  3. PREMARIN [Suspect]
     Dates: start: 19850101, end: 19910101
  4. MEDROXYPROGESTERONE ACETATE [Suspect]
     Dates: start: 19910101, end: 20020101
  5. MEDROXYPROGESTERONE ACETATE [Suspect]
     Dates: start: 19910101, end: 20020101

REACTIONS (1)
  - BREAST CANCER FEMALE [None]
